FAERS Safety Report 19048254 (Version 1)
Quarter: 2021Q1

REPORT INFORMATION
  Report Type: Spontaneous
  Country: US (occurrence: US)
  Receive Date: 20210324
  Receipt Date: 20210324
  Transmission Date: 20210420
  Serious: No
  Sender: FDA-Public Use
  Company Number: US-TEVA-2021-US-1890299

PATIENT
  Age: 71 Year
  Sex: Female

DRUGS (1)
  1. COPAXONE [Suspect]
     Active Substance: GLATIRAMER ACETATE
     Indication: MULTIPLE SCLEROSIS
     Dosage: STARTED SHORTLY AFTER HER DIAGNOSIS FOR MS, AROUND 20 YEARS AGO/FORM STRENGTH AND DOSE: UNKNOWN
     Route: 065

REACTIONS (2)
  - Fatigue [Unknown]
  - Gait disturbance [Unknown]
